FAERS Safety Report 4709764-0 (Version None)
Quarter: 2005Q3

REPORT INFORMATION
  Report Type: 
  Country: None (occurrence: None)
  Receive Date: 20050707
  Receipt Date: 20050620
  Transmission Date: 20060218
  Serious: Yes (Death, Life-Threatening, Hospitalization, Other)
  Sender: FDA-Public Use
  Company Number: USA0506100927

PATIENT
  Age: 89 Year
  Sex: Female

DRUGS (4)
  1. ZYPREXA [Suspect]
     Indication: AGGRESSION
     Dosage: 10 MG DAY
     Dates: start: 20040801
  2. VASOTEC [Concomitant]
  3. CALAN [Concomitant]
  4. XANAX [Concomitant]

REACTIONS (6)
  - ABDOMINAL DISTENSION [None]
  - CARDIAC ARREST [None]
  - HAEMORRHAGE [None]
  - LARGE INTESTINE PERFORATION [None]
  - PNEUMONIA ASPIRATION [None]
  - SEPTIC SHOCK [None]
